FAERS Safety Report 15916213 (Version 1)
Quarter: 2019Q1

REPORT INFORMATION
  Report Type: Spontaneous
  Country: GB (occurrence: GB)
  Receive Date: 20190204
  Receipt Date: 20190204
  Transmission Date: 20190417
  Serious: Yes (Hospitalization)
  Sender: FDA-Public Use
  Company Number: GB-ASTRAZENECA-2019SE16870

PATIENT
  Age: 86 Year
  Sex: Male

DRUGS (9)
  1. LANSOPRAZOLE. [Concomitant]
     Active Substance: LANSOPRAZOLE
  2. ATORVASTATIN [Concomitant]
     Active Substance: ATORVASTATIN
  3. ACETYLSALICYLIC ACID [Suspect]
     Active Substance: ASPIRIN
     Indication: PERCUTANEOUS CORONARY INTERVENTION
     Dosage: 75.0MG UNKNOWN
     Route: 048
  4. TICAGRELOR. [Suspect]
     Active Substance: TICAGRELOR
     Indication: PERCUTANEOUS CORONARY INTERVENTION
     Route: 048
     Dates: start: 2015, end: 2019
  5. GLYCERYL TRINITRATE [Concomitant]
     Active Substance: NITROGLYCERIN
  6. RANITIDINE. [Concomitant]
     Active Substance: RANITIDINE
  7. BICALUTAMIDE. [Concomitant]
     Active Substance: BICALUTAMIDE
  8. DECAPEPTYL SR [Concomitant]
     Active Substance: TRIPTORELIN
  9. BISOPROLOL FUMARATE. [Concomitant]
     Active Substance: BISOPROLOL FUMARATE

REACTIONS (2)
  - Haemorrhage intracranial [Recovering/Resolving]
  - Incorrect product administration duration [Unknown]
